FAERS Safety Report 17061733 (Version 1)
Quarter: 2019Q4

REPORT INFORMATION
  Report Type: Spontaneous
  Country: GR (occurrence: GR)
  Receive Date: 20191121
  Receipt Date: 20191121
  Transmission Date: 20200122
  Serious: Yes (Hospitalization)
  Sender: FDA-Public Use
  Company Number: GR-BAUSCH-BL-2019-018504

PATIENT
  Age: 24 Year
  Sex: Male

DRUGS (1)
  1. KYNTHEUM [Suspect]
     Active Substance: BRODALUMAB
     Indication: PSORIASIS
     Route: 065
     Dates: start: 201902

REACTIONS (3)
  - Malaise [Unknown]
  - Blood creatine phosphokinase increased [Unknown]
  - Folliculitis [Not Recovered/Not Resolved]

NARRATIVE: CASE EVENT DATE: 2019
